FAERS Safety Report 7379641-8 (Version None)
Quarter: 2011Q1

REPORT INFORMATION
  Report Type: 
  Country: None (occurrence: None)
  Receive Date: 20110329
  Receipt Date: 20110324
  Transmission Date: 20110831
  Serious: No
  Sender: FDA-Public Use
  Company Number: US-PFIZER INC-2011066618

PATIENT
  Sex: Female
  Weight: 69 kg

DRUGS (5)
  1. CHANTIX [Suspect]
     Dosage: 0.5 MG, 2X/DAY
     Dates: start: 20110301
  2. XANAX [Concomitant]
     Indication: ANXIETY
     Dosage: UNK
  3. CHANTIX [Suspect]
     Indication: SMOKING CESSATION THERAPY
     Dosage: 1 MG, 2X/DAY
     Route: 048
     Dates: start: 20110315
  4. CELEXA [Concomitant]
     Indication: DEPRESSION
     Dosage: UNK
  5. LAMICTAL [Concomitant]
     Indication: BIPOLAR DISORDER
     Dosage: 100 MG, 1X/DAY
     Route: 048

REACTIONS (1)
  - SOMNOLENCE [None]
